FAERS Safety Report 22004639 (Version 1)
Quarter: 2023Q1

REPORT INFORMATION
  Report Type: Spontaneous
  Country: US (occurrence: None)
  Receive Date: 20230216
  Receipt Date: 20230216
  Transmission Date: 20230418
  Serious: No
  Sender: FDA-Public Use
  Company Number: None

PATIENT
  Age: 40 Year
  Sex: Female
  Weight: 81 kg

DRUGS (3)
  1. ZOLPIDEM [Suspect]
     Active Substance: ZOLPIDEM TARTRATE
     Indication: Insomnia
     Dosage: OTHER QUANTITY : 1 TABLET(S);?FREQUENCY : AT BEDTIME;?
     Route: 048
  2. Mayzent + vitamin d [Concomitant]
  3. Melatonin gummies [Concomitant]

REACTIONS (7)
  - Product substitution issue [None]
  - Drug ineffective [None]
  - Agitation [None]
  - Restlessness [None]
  - Insomnia [None]
  - Hallucination [None]
  - Poor quality sleep [None]

NARRATIVE: CASE EVENT DATE: 20230215
